FAERS Safety Report 5747114-1 (Version None)
Quarter: 2008Q2

REPORT INFORMATION
  Report Type: 
  Country: None (occurrence: None)
  Receive Date: 20080522
  Receipt Date: 20080516
  Transmission Date: 20081010
  Serious: Yes (Other)
  Sender: FDA-Public Use
  Company Number: PHHY2008CA08144

PATIENT
  Sex: Female

DRUGS (1)
  1. AREDIA [Suspect]
     Route: 042

REACTIONS (2)
  - DISORDER OF ORBIT [None]
  - MYOSITIS [None]
